FAERS Safety Report 6994070-4 (Version None)
Quarter: 2010Q3

REPORT INFORMATION
  Report Type: 
  Country: None (occurrence: None)
  Receive Date: 20100917
  Receipt Date: 20100706
  Transmission Date: 20110219
  Serious: No
  Sender: FDA-Public Use
  Company Number: US-ASTRAZENECA-2007UW02377

PATIENT
  Age: 48 Year
  Sex: Male
  Weight: 104.3 kg

DRUGS (12)
  1. SEROQUEL [Suspect]
     Indication: SLEEP DISORDER
     Dosage: 100 MG AT NIGHT AS REQUIRED
     Route: 048
     Dates: start: 20030501, end: 20050221
  2. SEROQUEL [Suspect]
     Indication: MENTAL DISORDER
     Dosage: 100 MG AT NIGHT AS REQUIRED
     Route: 048
     Dates: start: 20030501, end: 20050221
  3. SEROQUEL [Suspect]
     Indication: INSOMNIA
     Dosage: 100 MG AT NIGHT AS REQUIRED
     Route: 048
     Dates: start: 20030501, end: 20050221
  4. SEROQUEL [Suspect]
     Route: 048
     Dates: start: 20050523
  5. SEROQUEL [Suspect]
     Route: 048
     Dates: start: 20050523
  6. SEROQUEL [Suspect]
     Route: 048
     Dates: start: 20050523
  7. ZOLOFT [Concomitant]
     Indication: DEPRESSION
     Dosage: 25-200 MG
     Route: 048
     Dates: start: 20030501
  8. KLONOPIN [Concomitant]
     Indication: MENTAL DISORDER
     Dosage: 1-2 MG
     Route: 048
     Dates: start: 20030501
  9. PROTONIX [Concomitant]
     Route: 048
     Dates: start: 20030501
  10. REGLAN [Concomitant]
     Dosage: 20 MG - 40 MG
     Route: 048
     Dates: start: 20030501
  11. CARAFATE [Concomitant]
     Dosage: 2-3 GM DAILY
     Dates: start: 20030501
  12. LIPITOR [Concomitant]
     Indication: HYPERCHOLESTEROLAEMIA
     Route: 048
     Dates: start: 20050221

REACTIONS (10)
  - BACK PAIN [None]
  - BLOOD CHOLESTEROL INCREASED [None]
  - DEPRESSION [None]
  - GASTROOESOPHAGEAL REFLUX DISEASE [None]
  - GYNAECOMASTIA [None]
  - HYPERGLYCAEMIA [None]
  - HYPERLIPIDAEMIA [None]
  - OBESITY [None]
  - TYPE 2 DIABETES MELLITUS [None]
  - VIRAL INFECTION [None]
